FAERS Safety Report 8778865 (Version 2)
Quarter: 2012Q4

REPORT INFORMATION
  Report Type: 
  Country: JP (occurrence: JP)
  Receive Date: 20120912
  Receipt Date: 20121003
  Transmission Date: 20130627
  Serious: Yes (Hospitalization)
  Sender: FDA-Public Use
  Company Number: PHHY2012JP078751

PATIENT
  Age: 65 Year
  Sex: Male

DRUGS (2)
  1. NEORAL [Suspect]
     Indication: RENAL TRANSPLANT
     Dosage: 120 mg, UNK
     Route: 048
  2. CELLCEPT [Concomitant]
     Dosage: 1000 mg, UNK
     Route: 048

REACTIONS (3)
  - Cholecystitis acute [Unknown]
  - Pain [Recovered/Resolved]
  - Feeling hot [Recovered/Resolved]
